FAERS Safety Report 6596541-1 (Version None)
Quarter: 2010Q1

REPORT INFORMATION
  Report Type: 
  Country: None (occurrence: None)
  Receive Date: 20100212
  Receipt Date: 20100121
  Transmission Date: 20100710
  Serious: No
  Sender: FDA-Public Use
  Company Number: 2010-00073

PATIENT
  Age: 69 Year
  Sex: Female
  Weight: 81.6475 kg

DRUGS (15)
  1. ZICAM COLD REMEDY ORAL MIST [Suspect]
     Dosage: BID, 1 DAY, 2 DOSES
     Dates: start: 20100117, end: 20100117
  2. SOMA [Concomitant]
  3. PREDNISONE [Concomitant]
  4. CELEBREX [Concomitant]
  5. SPIRONOLACTONE [Concomitant]
  6. DIOVAN [Concomitant]
  7. COREG [Concomitant]
  8. PLAQUENIL [Concomitant]
  9. NITROGLYCERIN [Concomitant]
  10. AMBIEN [Concomitant]
  11. CALCIUM WITH VITAMIN D [Concomitant]
  12. MULTI-VITAMIN [Concomitant]
  13. VITAMIN C [Concomitant]
  14. FLAX SEED OIL [Concomitant]
  15. VITAMIN E [Concomitant]

REACTIONS (1)
  - AGEUSIA [None]
